FAERS Safety Report 9060670 (Version 1)
Quarter: 2013Q1

REPORT INFORMATION
  Report Type: Report from Study
  Country: JP (occurrence: JP)
  Receive Date: 20130204
  Receipt Date: 20130204
  Transmission Date: 20140127
  Serious: Yes (Death)
  Sender: FDA-Public Use
  Company Number: JP-ROCHE-1173194

PATIENT
  Sex: Male

DRUGS (7)
  1. PEG-INTERFERON ALFA 2A [Suspect]
     Indication: CHRONIC HEPATITIS C
     Route: 058
     Dates: start: 20110808, end: 20120514
  2. RIBAVIRIN [Suspect]
     Indication: CHRONIC HEPATITIS C
     Route: 048
     Dates: start: 20110808, end: 20120516
  3. URSO [Concomitant]
     Indication: CHRONIC HEPATITIS C
     Route: 048
  4. AMLODIPINE BESILATE [Concomitant]
     Route: 048
  5. DIGOXIN [Concomitant]
     Route: 048
  6. BAYASPIRIN [Concomitant]
     Route: 048
  7. GASMOTIN [Concomitant]
     Route: 048
     Dates: start: 20111024

REACTIONS (1)
  - Gastric varices haemorrhage [Fatal]
